FAERS Safety Report 23140044 (Version 3)
Quarter: 2024Q1

REPORT INFORMATION
  Report Type: Spontaneous
  Country: US (occurrence: US)
  Receive Date: 20231102
  Receipt Date: 20240108
  Transmission Date: 20240409
  Serious: Yes (Hospitalization)
  Sender: FDA-Public Use
  Company Number: US-PFIZER INC-PV202300176958

PATIENT
  Age: 30 Year
  Sex: Female
  Weight: 79.365 kg

DRUGS (1)
  1. XELJANZ [Suspect]
     Active Substance: TOFACITINIB CITRATE
     Indication: Dermatomyositis
     Dosage: 5 MG, 2X/DAY
     Route: 048
     Dates: start: 2022

REACTIONS (5)
  - Food allergy [Unknown]
  - Epigastric discomfort [Unknown]
  - Hyperhidrosis [Unknown]
  - Feeling hot [Unknown]
  - Off label use [Unknown]
